FAERS Safety Report 18414628 (Version 2)
Quarter: 2020Q4

REPORT INFORMATION
  Report Type: Report from Study
  Country: US (occurrence: US)
  Receive Date: 20201022
  Receipt Date: 20201109
  Transmission Date: 20210114
  Serious: Yes (Death)
  Sender: FDA-Public Use
  Company Number: US-BAYER-2020-227042

PATIENT
  Age: 65 Year
  Sex: Male

DRUGS (3)
  1. MACITENTAN [Concomitant]
     Active Substance: MACITENTAN
     Dosage: UNK
  2. TREPROSTINIL. [Concomitant]
     Active Substance: TREPROSTINIL
     Dosage: UNK
  3. ADEMPAS [Suspect]
     Active Substance: RIOCIGUAT
     Indication: PULMONARY ARTERIAL HYPERTENSION
     Dosage: 0.5 MG, TID
     Route: 048
     Dates: start: 202009

REACTIONS (4)
  - Acute respiratory failure [Fatal]
  - Pulmonary alveolar haemorrhage [Fatal]
  - Acute kidney injury [Fatal]
  - Pulmonary hypertension [Fatal]

NARRATIVE: CASE EVENT DATE: 2020
